FAERS Safety Report 7436946-X (Version None)
Quarter: 2011Q2

REPORT INFORMATION
  Report Type: 
  Country: None (occurrence: None)
  Receive Date: 20110426
  Receipt Date: 20110415
  Transmission Date: 20111010
  Serious: No
  Sender: FDA-Public Use
  Company Number: US-PFIZER INC-2011084114

PATIENT
  Sex: Female

DRUGS (1)
  1. NEOMYCIN SULFATE [Suspect]
     Dosage: UNK

REACTIONS (2)
  - BLISTER [None]
  - RASH [None]
